FAERS Safety Report 26128384 (Version 1)
Quarter: 2025Q4

REPORT INFORMATION
  Report Type: Other
  Country: US (occurrence: US)
  Receive Date: 20251207
  Receipt Date: 20251207
  Transmission Date: 20260117
  Serious: Yes (Other)
  Sender: HLS THERAPEUTICS
  Company Number: US-HLS-202500416

PATIENT
  Age: 58 Year
  Sex: Male

DRUGS (4)
  1. CLOZAPINE [Suspect]
     Active Substance: CLOZAPINE
     Indication: Psychotic disorder
     Route: 048
  2. VALPROIC ACID [Concomitant]
     Active Substance: VALPROIC ACID
     Indication: Psychotic disorder
     Route: 065
  3. RISPERIDONE [Concomitant]
     Active Substance: RISPERIDONE
     Indication: Psychotic disorder
     Dosage: LONG-ACTING INJECTABLE
     Route: 065
  4. RIOCIGUAT [Concomitant]
     Active Substance: RIOCIGUAT
     Indication: Pulmonary hypertension
     Route: 065

REACTIONS (6)
  - Abdominal distension [Unknown]
  - Pulmonary hypertension [Unknown]
  - Delirium [Unknown]
  - Drug interaction [Unknown]
  - Gait disturbance [Unknown]
  - Muscle spasms [Unknown]
